FAERS Safety Report 9393269 (Version 5)
Quarter: 2013Q4

REPORT INFORMATION
  Report Type: Report from Study
  Country: US (occurrence: US)
  Receive Date: 20130710
  Receipt Date: 20131001
  Transmission Date: 20140711
  Serious: Yes (Hospitalization, Other)
  Sender: FDA-Public Use
  Company Number: US-US-EMD SERONO, INC.-7222737

PATIENT
  Age: 54 Year
  Sex: Female

DRUGS (3)
  1. REBIF [Suspect]
     Indication: MULTIPLE SCLEROSIS
     Route: 058
     Dates: start: 20091001
  2. REBIF [Suspect]
     Route: 058
     Dates: start: 20130706, end: 20130712
  3. REBIF [Suspect]
     Route: 058
     Dates: start: 20130812

REACTIONS (6)
  - Cerebral haemangioma [Not Recovered/Not Resolved]
  - Intervertebral disc compression [Recovering/Resolving]
  - Migraine [Unknown]
  - Unevaluable event [Unknown]
  - Multiple sclerosis [Not Recovered/Not Resolved]
  - Injection site pain [Not Recovered/Not Resolved]
